FAERS Safety Report 14989665 (Version 3)
Quarter: 2018Q3

REPORT INFORMATION
  Report Type: Report from Study
  Country: RU (occurrence: RU)
  Receive Date: 20180608
  Receipt Date: 20180731
  Transmission Date: 20181010
  Serious: Yes (Hospitalization)
  Sender: FDA-Public Use
  Company Number: PHHO2018RU006731

PATIENT
  Age: 60 Year
  Sex: Male
  Weight: 75 kg

DRUGS (4)
  1. CEFTRIAXONE. [Suspect]
     Active Substance: CEFTRIAXONE
     Indication: PRODUCT USED FOR UNKNOWN INDICATION
     Dosage: UNKNOWN
     Route: 065
     Dates: start: 20180521, end: 20180528
  2. BLINDED QAW039 [Suspect]
     Active Substance: FEVIPIPRANT
     Indication: ASTHMA
     Dosage: CODE NOT BROKEN
     Route: 048
     Dates: start: 20180503
  3. BLINDED PLACEBO [Suspect]
     Active Substance: INVESTIGATIONAL PRODUCT
     Indication: ASTHMA
     Dosage: CODE NOT BROKEN
     Route: 048
     Dates: start: 20180503
  4. BLINDED NO TREATMENT RECEIVED [Suspect]
     Active Substance: INVESTIGATIONAL PRODUCT
     Indication: ASTHMA
     Dosage: CODE NOT BROKEN
     Route: 048
     Dates: start: 20180503

REACTIONS (1)
  - Acute sinusitis [Recovered/Resolved]

NARRATIVE: CASE EVENT DATE: 20180518
